FAERS Safety Report 8952888 (Version 3)
Quarter: 2013Q1

REPORT INFORMATION
  Report Type: Spontaneous
  Country: US (occurrence: US)
  Receive Date: 20121203
  Receipt Date: 20130314
  Transmission Date: 20140127
  Serious: No
  Sender: FDA-Public Use
  Company Number: US-009507513-1211USA012324

PATIENT
  Sex: Female
  Weight: 127.89 kg

DRUGS (1)
  1. IMPLANON [Suspect]
     Indication: CONTRACEPTION
     Dosage: UNK
     Dates: start: 20110817, end: 20120905

REACTIONS (4)
  - Device breakage [Unknown]
  - Device dislocation [Unknown]
  - Product quality issue [Unknown]
  - No adverse event [Unknown]
